FAERS Safety Report 10533449 (Version 5)
Quarter: 2015Q1

REPORT INFORMATION
  Report Type: Spontaneous
  Country: US (occurrence: US)
  Receive Date: 20141022
  Receipt Date: 20150330
  Transmission Date: 20150720
  Serious: No
  Sender: FDA-Public Use
  Company Number: US-PFIZER INC-2014289277

PATIENT
  Age: 62 Year
  Sex: Female
  Weight: 76 kg

DRUGS (4)
  1. XANAX [Suspect]
     Active Substance: ALPRAZOLAM
     Indication: ANXIETY
     Dosage: 1 MG, 1X/DAY (IN MORNING )
  2. TENORMIN [Concomitant]
     Active Substance: ATENOLOL
     Indication: BLOOD PRESSURE ABNORMAL
     Dosage: 25 MG, 2X/DAY
  3. XANAX [Suspect]
     Active Substance: ALPRAZOLAM
     Dosage: 3.5 MG (1 AND HALF AND 2 OF 1MG TABLET), UNK
  4. XANAX XR [Concomitant]
     Active Substance: ALPRAZOLAM
     Dosage: UNK , 1X/DAY (AT NIGHT)

REACTIONS (7)
  - Therapeutic response unexpected [Unknown]
  - Motion sickness [Unknown]
  - Product size issue [Unknown]
  - Product quality issue [Unknown]
  - Pre-existing condition improved [Unknown]
  - Drug ineffective [Unknown]
  - Product physical issue [Unknown]

NARRATIVE: CASE EVENT DATE: 201407
